FAERS Safety Report 8893546 (Version 1)
Quarter: 2012Q4

REPORT INFORMATION
  Report Type: 
  Country: US (occurrence: US)
  Receive Date: 20121108
  Receipt Date: 20121108
  Transmission Date: 20130627
  Serious: No
  Sender: FDA-Public Use
  Company Number: US-PFIZER INC-2012278944

PATIENT
  Age: 41 Year
  Sex: Female
  Weight: 97.51 kg

DRUGS (3)
  1. PRISTIQ [Suspect]
     Indication: DEPRESSION
     Dosage: 50 mg, daily
     Dates: start: 201112
  2. PRISTIQ [Suspect]
     Dosage: 50 mg, alternate day
     Dates: start: 201112
  3. LISINOPRIL [Concomitant]
     Indication: BLOOD PRESSURE HIGH
     Dosage: UNK, daily

REACTIONS (6)
  - Inappropriate schedule of drug administration [Unknown]
  - Crying [Unknown]
  - Feeling abnormal [Unknown]
  - Feeling drunk [Unknown]
  - Dizziness [Unknown]
  - Weight increased [Unknown]
